FAERS Safety Report 19639313 (Version 2)
Quarter: 2021Q3

REPORT INFORMATION
  Report Type: Report from Study
  Country: MX (occurrence: MX)
  Receive Date: 20210730
  Receipt Date: 20210806
  Transmission Date: 20211014
  Serious: Yes (Death, Hospitalization)
  Sender: FDA-Public Use
  Company Number: NVSC2021MX171404

PATIENT
  Age: 91 Year
  Sex: Female
  Weight: 70 kg

DRUGS (3)
  1. EVIPRESS [Concomitant]
     Indication: HYPERTENSION
     Dosage: 1/2 DF, QD (AT NIGHT, STARTED MANY YEARS AGO)
     Route: 048
  2. CLONAZEPAM. [Concomitant]
     Active Substance: CLONAZEPAM
     Indication: ANXIETY
     Dosage: 1/2 DF, QD (AT NIGHT, STARTED MANY YEARS AGO)
     Route: 048
  3. CO?DIOVAN [Suspect]
     Active Substance: HYDROCHLOROTHIAZIDE\VALSARTAN
     Indication: HYPERTENSION
     Dosage: 1 DF
     Route: 048
     Dates: start: 2015

REACTIONS (5)
  - Cardiogenic shock [Fatal]
  - Congestive cardiomyopathy [Fatal]
  - Pneumoconiosis [Fatal]
  - Chronic obstructive pulmonary disease [Fatal]
  - Choking [Recovered/Resolved]

NARRATIVE: CASE EVENT DATE: 20210608
